FAERS Safety Report 19045326 (Version 1)
Quarter: 2021Q1

REPORT INFORMATION
  Report Type: Report from Study
  Country: US (occurrence: US)
  Receive Date: 20210322
  Receipt Date: 20210322
  Transmission Date: 20210420
  Serious: Yes (Death)
  Sender: FDA-Public Use
  Company Number: US-ASTRAZENECA-2021A176006

PATIENT
  Sex: Male

DRUGS (1)
  1. IMFINZI [Suspect]
     Active Substance: DURVALUMAB
     Dosage: 120 MG AS 10 MG IV OVER 60 MINUTES EVERY 2 WEEKS , OR 500 MG VIAL 10 MG OVER 60 MINUTES EVERY 2...
     Route: 042

REACTIONS (1)
  - Death [Fatal]
